FAERS Safety Report 5746322-3 (Version None)
Quarter: 2008Q2

REPORT INFORMATION
  Report Type: 
  Country: None (occurrence: None)
  Receive Date: 20080522
  Receipt Date: 20080509
  Transmission Date: 20081010
  Serious: Yes (Life-Threatening, Hospitalization)
  Sender: FDA-Public Use
  Company Number: JP-GENENTECH-261113

PATIENT
  Age: 67 Year
  Sex: Male

DRUGS (1)
  1. AVASTIN [Suspect]
     Indication: COLON CANCER
     Dosage: UNK, Q2W
     Route: 042
     Dates: start: 20080424

REACTIONS (2)
  - HYPERTHERMIA [None]
  - RHABDOMYOLYSIS [None]
